FAERS Safety Report 8830370 (Version 1)
Quarter: 2012Q4

REPORT INFORMATION
  Report Type: 
  Country: US (occurrence: US)
  Receive Date: 20121009
  Receipt Date: 20121009
  Transmission Date: 20130627
  Serious: No
  Sender: FDA-Public Use
  Company Number: US-PFIZER INC-2012245949

PATIENT
  Age: 73 Year
  Sex: Male

DRUGS (4)
  1. SUTENT [Suspect]
     Dosage: 50 mg daily for 28 days, then 14 days off and repeat
  2. LISINOPRIL [Concomitant]
  3. ASPIRIN [Concomitant]
     Dosage: 81 mg, UNK
  4. QUESTRAN [Concomitant]
     Dosage: UNK, powder 3x/day

REACTIONS (1)
  - Diarrhoea [Not Recovered/Not Resolved]
